FAERS Safety Report 6712388-7 (Version None)
Quarter: 2010Q2

REPORT INFORMATION
  Report Type: 
  Country: None (occurrence: None)
  Receive Date: 20100505
  Receipt Date: 20100423
  Transmission Date: 20101027
  Serious: Yes (Death, Hospitalization)
  Sender: FDA-Public Use
  Company Number: CO-GENENTECH-301057

PATIENT
  Sex: Male

DRUGS (1)
  1. MABTHERA [Suspect]
     Indication: NON-HODGKIN'S LYMPHOMA
     Dosage: 675 MG, Q21D
     Route: 042
     Dates: start: 20090316, end: 20090919

REACTIONS (4)
  - ASTHENIA [None]
  - CARDIOPULMONARY FAILURE [None]
  - DECREASED APPETITE [None]
  - PAIN [None]
